FAERS Safety Report 6379632-X (Version None)
Quarter: 2009Q3

REPORT INFORMATION
  Report Type: 
  Country: None (occurrence: None)
  Receive Date: 20090928
  Receipt Date: 20090917
  Transmission Date: 20100115
  Serious: No
  Sender: FDA-Public Use
  Company Number: US-B.I. PHARMACEUTICALS,INC./RIDGEFIELD-2009-BP-11036BP

PATIENT
  Age: 64 Year
  Sex: Female

DRUGS (4)
  1. SPIRIVA [Suspect]
     Indication: CHRONIC OBSTRUCTIVE PULMONARY DISEASE
     Route: 055
     Dates: start: 20090601
  2. DULCOLAX [Suspect]
     Indication: BOWEL PREPARATION
     Dosage: 10 MG
     Route: 048
     Dates: start: 20090917
  3. ENBREL [Concomitant]
     Indication: RHEUMATOID ARTHRITIS
  4. IBUPROFEN [Concomitant]
     Indication: RHEUMATOID ARTHRITIS
     Dosage: 800 MG

REACTIONS (2)
  - MIGRAINE WITH AURA [None]
  - RECTAL HAEMORRHAGE [None]
